FAERS Safety Report 15314943 (Version 1)
Quarter: 2018Q3

REPORT INFORMATION
  Report Type: Spontaneous
  Country: US (occurrence: US)
  Receive Date: 20180815
  Receipt Date: 20180815
  Transmission Date: 20181010
  Serious: Yes (Hospitalization)
  Sender: FDA-Public Use
  Company Number: None

PATIENT
  Age: 34 Year
  Sex: Male
  Weight: 161.5 kg

DRUGS (1)
  1. TRULICITY [Suspect]
     Active Substance: DULAGLUTIDE
     Indication: DIABETES MELLITUS
     Route: 058
     Dates: start: 20180301, end: 20180521

REACTIONS (9)
  - Dyspnoea [None]
  - Chills [None]
  - Pancreatitis acute [None]
  - Cholelithiasis [None]
  - Abdominal pain upper [None]
  - Nausea [None]
  - Flushing [None]
  - Hyperhidrosis [None]
  - Gastrooesophageal reflux disease [None]

NARRATIVE: CASE EVENT DATE: 20180521
